FAERS Safety Report 7171044-4 (Version None)
Quarter: 2010Q4

REPORT INFORMATION
  Report Type: 
  Country: None (occurrence: None)
  Receive Date: 20101207
  Receipt Date: 20101125
  Transmission Date: 20110411
  Serious: Yes (Other)
  Sender: FDA-Public Use
  Company Number: 2010EU005424

PATIENT
  Sex: Female
  Weight: 65 kg

DRUGS (5)
  1. VESICARE [Suspect]
     Dates: start: 20100601, end: 20100801
  2. ARICEPT [Concomitant]
  3. AMLONG (AMLODIPINE) [Concomitant]
  4. PANTOPRAZOLE SODIUM [Concomitant]
  5. MEDOMET (METHYLDOPA) [Concomitant]

REACTIONS (2)
  - CONDITION AGGRAVATED [None]
  - MENTAL STATUS CHANGES [None]
